FAERS Safety Report 18396324 (Version 8)
Quarter: 2021Q1

REPORT INFORMATION
  Report Type: Report from Study
  Country: CN (occurrence: CN)
  Receive Date: 20201019
  Receipt Date: 20210325
  Transmission Date: 20210419
  Serious: Yes (Hospitalization)
  Sender: FDA-Public Use
  Company Number: CN-ROCHE-2694428

PATIENT
  Age: 41 Year
  Sex: Male
  Weight: 82 kg

DRUGS (41)
  1. FOLIC ACID. [Concomitant]
     Active Substance: FOLIC ACID
     Indication: PROPHYLAXIS
     Dates: start: 20200904
  2. TROPISETRON HYDROCHLORIDE [Concomitant]
     Active Substance: TROPISETRON HYDROCHLORIDE
     Dates: start: 20201014, end: 20201014
  3. LANSOPRAZOLE. [Concomitant]
     Active Substance: LANSOPRAZOLE
     Dates: start: 20201014, end: 20201014
  4. BETAMETHASONE. [Concomitant]
     Active Substance: BETAMETHASONE
     Route: 042
     Dates: start: 20201103, end: 20201103
  5. DEXAMETHASONE ACETATE [Concomitant]
     Active Substance: DEXAMETHASONE ACETATE
     Route: 048
     Dates: start: 20200912, end: 20200912
  6. DEXAMETHASONE ACETATE [Concomitant]
     Active Substance: DEXAMETHASONE ACETATE
     Dates: start: 20201104, end: 20201127
  7. PEGYLATED RECOMBINANT HUMAN GRANULOCYTE COLONY STIMULATING FACTOR [Concomitant]
     Dates: start: 20201103, end: 20201103
  8. DEXAMETHASONE ACETATE [Concomitant]
     Active Substance: DEXAMETHASONE ACETATE
     Route: 048
     Dates: start: 20201014, end: 20201015
  9. DEXAMETHASONE ACETATE [Concomitant]
     Active Substance: DEXAMETHASONE ACETATE
     Route: 048
     Dates: start: 20201103, end: 20201104
  10. LEUCOGEN [Concomitant]
     Active Substance: LEUCOGEN
     Dates: start: 20201210
  11. LORATADINE. [Concomitant]
     Active Substance: LORATADINE
     Indication: RASH
     Dates: start: 20201015, end: 20201020
  12. DIAMMONIUM GLYCYRRHIZINATE [Concomitant]
     Active Substance: HERBALS\DIAMMONIUM GLYCYRRHIZINATE
     Indication: PROPHYLAXIS
     Dates: start: 20201104, end: 20201124
  13. BEVACIZUMAB. [Suspect]
     Active Substance: BEVACIZUMAB
     Indication: NON-SMALL CELL LUNG CANCER
     Dosage: ON 11/SEP/2020, HE RECEIVED THE LAST DOSE OF INTRAVENOUS BEVACIZUMAB 1230 MG PRIOR TO THE ONSET OF S
     Route: 042
     Dates: start: 20200911
  14. MAGNESIUM ISOGLYCYRRHIZINATE [Concomitant]
     Active Substance: MAGNESIUM ISOGLYCYRRHIZINATE
     Dates: start: 20201103, end: 20201103
  15. DEXAMETHASONE ACETATE [Concomitant]
     Active Substance: DEXAMETHASONE ACETATE
     Route: 048
     Dates: start: 20200910, end: 20200911
  16. DEXAMETHASONE ACETATE [Concomitant]
     Active Substance: DEXAMETHASONE ACETATE
     Route: 048
     Dates: start: 20210103, end: 20210103
  17. ONDANSETRON HYDROCHLORIDE. [Concomitant]
     Active Substance: ONDANSETRON HYDROCHLORIDE
     Indication: PROPHYLAXIS
     Dates: start: 20200911, end: 20200915
  18. ATEZOLIZUMAB. [Suspect]
     Active Substance: ATEZOLIZUMAB
     Indication: NON-SMALL CELL LUNG CANCER
     Dosage: ON 11/SEP/2020, HE RECEIVED MOST RECENT DOSE 1200 MG OF INTRAVENOUS ATEZOLIZUMAB PRIOR TO THE ONSET
     Route: 041
     Dates: start: 20200911
  19. LANSOPRAZOLE. [Concomitant]
     Active Substance: LANSOPRAZOLE
     Indication: PROPHYLAXIS
     Dates: start: 20200911, end: 20200911
  20. LANSOPRAZOLE. [Concomitant]
     Active Substance: LANSOPRAZOLE
     Dates: start: 20201103, end: 20201103
  21. DEXAMETHASONE ACETATE [Concomitant]
     Active Substance: DEXAMETHASONE ACETATE
     Route: 048
     Dates: start: 20201016, end: 20201016
  22. LEUCOGEN [Concomitant]
     Active Substance: LEUCOGEN
     Indication: PROPHYLAXIS
     Dates: start: 20200911, end: 20200926
  23. CARBOPLATIN. [Suspect]
     Active Substance: CARBOPLATIN
     Indication: NON-SMALL CELL LUNG CANCER
     Dosage: ON 11/SEP/2020, HE RECEIVED THE LAST DOSE OF INTRAVENOUS CARBOPLATIN 900 MG PRIOR TO THE ONSET OF SE
     Route: 042
     Dates: start: 20200911
  24. PEMETREXED. [Suspect]
     Active Substance: PEMETREXED
     Indication: NON-SMALL CELL LUNG CANCER
     Dosage: ON 11/SEP/2020, HE RECEIVED THE LAST DOSE OF INTRAVENOUS PEMETREXED 1000 MG PRIOR TO THE ONSET OF SE
     Route: 042
     Dates: start: 20200911
  25. TROPISETRON HYDROCHLORIDE [Concomitant]
     Active Substance: TROPISETRON HYDROCHLORIDE
     Indication: PROPHYLAXIS
     Dates: start: 20200911, end: 20200911
  26. BETAMETHASONE. [Concomitant]
     Active Substance: BETAMETHASONE
     Route: 042
     Dates: start: 20200911, end: 20200911
  27. OMEPRAZOLE MAGNESIUM. [Concomitant]
     Active Substance: OMEPRAZOLE MAGNESIUM
     Indication: PROPHYLAXIS
     Dates: start: 20200911, end: 20200914
  28. DIAMMONIUM GLYCYRRHIZINATE [Concomitant]
     Active Substance: HERBALS\DIAMMONIUM GLYCYRRHIZINATE
     Dates: start: 20210101
  29. BETAMETHASONE. [Concomitant]
     Active Substance: BETAMETHASONE
     Route: 042
     Dates: start: 20201014, end: 20201014
  30. LEUCOGEN [Concomitant]
     Active Substance: LEUCOGEN
     Dates: start: 20201210
  31. PEGYLATED RECOMBINANT HUMAN GRANULOCYTE COLONY STIMULATING FACTOR [Concomitant]
     Dates: start: 20201102, end: 20201102
  32. TROPISETRON HYDROCHLORIDE [Concomitant]
     Active Substance: TROPISETRON HYDROCHLORIDE
     Dates: start: 20201103, end: 20201103
  33. LANSOPRAZOLE. [Concomitant]
     Active Substance: LANSOPRAZOLE
     Dates: start: 20201013, end: 20201013
  34. MAGNESIUM ISOGLYCYRRHIZINATE [Concomitant]
     Active Substance: MAGNESIUM ISOGLYCYRRHIZINATE
     Dates: start: 20201014, end: 20201014
  35. MAGNESIUM ISOGLYCYRRHIZINATE [Concomitant]
     Active Substance: MAGNESIUM ISOGLYCYRRHIZINATE
     Dates: start: 20210122, end: 20210122
  36. DEXAMETHASONE ACETATE [Concomitant]
     Active Substance: DEXAMETHASONE ACETATE
     Route: 048
     Dates: start: 20201013, end: 20201013
  37. DEXAMETHASONE ACETATE [Concomitant]
     Active Substance: DEXAMETHASONE ACETATE
     Route: 048
     Dates: start: 20201102, end: 20201102
  38. DEXAMETHASONE ACETATE [Concomitant]
     Active Substance: DEXAMETHASONE ACETATE
     Route: 048
     Dates: start: 20201208, end: 20201208
  39. DEXAMETHASONE ACETATE [Concomitant]
     Active Substance: DEXAMETHASONE ACETATE
     Route: 048
     Dates: start: 20201209, end: 20201210
  40. DEXAMETHASONE ACETATE [Concomitant]
     Active Substance: DEXAMETHASONE ACETATE
     Route: 048
     Dates: start: 20201230, end: 20201230
  41. DEXAMETHASONE ACETATE [Concomitant]
     Active Substance: DEXAMETHASONE ACETATE
     Route: 048
     Dates: start: 20210101, end: 20210102

REACTIONS (1)
  - Hepatic function abnormal [Not Recovered/Not Resolved]

NARRATIVE: CASE EVENT DATE: 20200923
